FAERS Safety Report 4790042-9 (Version None)
Quarter: 2005Q4

REPORT INFORMATION
  Report Type: 
  Country: None (occurrence: None)
  Receive Date: 20051005
  Receipt Date: 20051005
  Transmission Date: 20060501
  Serious: No
  Sender: FDA-Public Use
  Company Number: None

PATIENT
  Age: 80 Year
  Sex: Male

DRUGS (1)
  1. GATIFLOXACIN [Suspect]
     Dates: start: 20050823, end: 20050906

REACTIONS (1)
  - RASH [None]
